FAERS Safety Report 9697058 (Version 3)
Quarter: 2013Q4

REPORT INFORMATION
  Report Type: Report from Study
  Country: ES (occurrence: ES)
  Receive Date: 20131120
  Receipt Date: 20131204
  Transmission Date: 20140711
  Serious: Yes (Hospitalization)
  Sender: FDA-Public Use
  Company Number: ES-AMGEN-ESPCT2013074322

PATIENT
  Age: 65 Year
  Sex: Male

DRUGS (3)
  1. PANITUMUMAB [Suspect]
     Indication: GASTRIC CANCER
     Dosage: 324 MG, Q2WK
     Route: 042
     Dates: start: 20130916
  2. DOCETAXEL [Concomitant]
     Dosage: 80 MG, Q2WK
     Route: 042
     Dates: start: 20130916
  3. CISPLATINO [Concomitant]
     Dosage: 80 MG, Q2WK
     Route: 042
     Dates: start: 20130916

REACTIONS (1)
  - Mucosal inflammation [Recovered/Resolved]
